FAERS Safety Report 15689145 (Version 2)
Quarter: 2018Q4

REPORT INFORMATION
  Report Type: Report from Study
  Country: ES (occurrence: ES)
  Receive Date: 20181205
  Receipt Date: 20181205
  Transmission Date: 20190205
  Serious: Yes (Other)
  Sender: FDA-Public Use
  Company Number: ES-BAYER-2018-217913

PATIENT
  Age: 91 Year
  Sex: Male

DRUGS (7)
  1. OMEPRAZOLE. [Concomitant]
     Active Substance: OMEPRAZOLE
     Dosage: UNK
     Route: 048
  2. SERTRALINA [SERTRALINE] [Concomitant]
     Dosage: UNK
     Route: 048
  3. ALOPURINOL [Concomitant]
     Active Substance: ALLOPURINOL
     Dosage: UNK
     Route: 048
  4. ACFOL [Concomitant]
     Active Substance: FOLIC ACID
     Dosage: UNK
     Route: 048
  5. ADIRO 100MG [Suspect]
     Active Substance: ASPIRIN
     Dosage: 100 MG, QD
  6. ALDACTONE [Suspect]
     Active Substance: SPIRONOLACTONE
     Dosage: 25 MG, QD
     Route: 048
     Dates: start: 201705, end: 20180213
  7. SEGURIL [Suspect]
     Active Substance: FUROSEMIDE
     Dosage: 40 MG, QD
     Route: 048
     Dates: start: 201704, end: 20180213

REACTIONS (1)
  - Acute kidney injury [Recovered/Resolved]

NARRATIVE: CASE EVENT DATE: 2018
